FAERS Safety Report 18235270 (Version 1)
Quarter: 2020Q3

REPORT INFORMATION
  Report Type: Report from Study
  Country: DE (occurrence: DE)
  Receive Date: 20200904
  Receipt Date: 20200904
  Transmission Date: 20201103
  Serious: Yes (Other)
  Sender: FDA-Public Use
  Company Number: DE-AUROBINDO-AUR-APL-2019-045781

PATIENT
  Age: 26 Year
  Sex: Male

DRUGS (8)
  1. PREDNISOLONE. [Suspect]
     Active Substance: PREDNISOLONE
     Indication: CANDIDA INFECTION
     Dosage: UNK
     Route: 065
  2. VORICONAZOLE. [Suspect]
     Active Substance: VORICONAZOLE
     Indication: KERATITIS FUNGAL
     Dosage: UNK
     Route: 050
  3. VORICONAZOLE. [Suspect]
     Active Substance: VORICONAZOLE
     Indication: CANDIDA INFECTION
     Dosage: UNK
     Route: 065
  4. FLUCONAZOLE. [Suspect]
     Active Substance: FLUCONAZOLE
     Indication: CANDIDA INFECTION
     Dosage: UNK
     Route: 048
  5. FLUCONAZOLE. [Suspect]
     Active Substance: FLUCONAZOLE
     Indication: KERATITIS FUNGAL
     Dosage: UNK
     Route: 065
  6. LEVOFLOXACIN. [Suspect]
     Active Substance: LEVOFLOXACIN
     Indication: KERATITIS FUNGAL
     Dosage: UNK
     Route: 065
  7. LEVOFLOXACIN. [Suspect]
     Active Substance: LEVOFLOXACIN
     Indication: CANDIDA INFECTION
     Dosage: UNK
     Route: 050
  8. PREDNISOLONE. [Suspect]
     Active Substance: PREDNISOLONE
     Indication: KERATITIS FUNGAL
     Dosage: UNK
     Route: 048

REACTIONS (1)
  - Drug ineffective [Unknown]
